FAERS Safety Report 11644503 (Version 1)
Quarter: 2015Q4

REPORT INFORMATION
  Report Type: Spontaneous
  Country: US (occurrence: US)
  Receive Date: 20151020
  Receipt Date: 20151020
  Transmission Date: 20160304
  Serious: No
  Sender: FDA-Public Use
  Company Number: US-GLAXOSMITHKLINE-US2015148112

PATIENT
  Sex: Female

DRUGS (2)
  1. SENSODYNE [Suspect]
     Active Substance: POTASSIUM NITRATE\SODIUM FLUORIDE
     Indication: SENSITIVITY OF TEETH
     Dosage: UNK
  2. ABREVA [Suspect]
     Active Substance: DOCOSANOL
     Indication: SENSITIVITY OF TEETH
     Dosage: UNK

REACTIONS (5)
  - Condition aggravated [Unknown]
  - Noninfective gingivitis [Unknown]
  - Sensitivity of teeth [Unknown]
  - Exposure during pregnancy [Unknown]
  - Gingival bleeding [Unknown]
